FAERS Safety Report 12355155 (Version 1)
Quarter: 2016Q2

REPORT INFORMATION
  Report Type: Spontaneous
  Country: US (occurrence: US)
  Receive Date: 20160511
  Receipt Date: 20160511
  Transmission Date: 20160815
  Serious: No
  Sender: FDA-Public Use
  Company Number: ADR-2015-01278

PATIENT
  Age: 47 Year
  Sex: Male

DRUGS (4)
  1. GILENYA [Suspect]
     Active Substance: FINGOLIMOD HYDROCHLORIDE
     Dosage: 0.5 MG QD
     Route: 048
     Dates: start: 20120425, end: 201505
  2. BACLOFEN. [Suspect]
     Active Substance: BACLOFEN
     Route: 065
     Dates: start: 201412
  3. AMPYRA [Suspect]
     Active Substance: DALFAMPRIDINE
  4. TIZANIDINE. [Concomitant]
     Active Substance: TIZANIDINE
     Dates: start: 20150401

REACTIONS (2)
  - Somnolence [Recovered/Resolved]
  - Fatigue [Unknown]

NARRATIVE: CASE EVENT DATE: 201412
